FAERS Safety Report 19926251 (Version 1)
Quarter: 2021Q4

REPORT INFORMATION
  Report Type: Spontaneous
  Country: KR (occurrence: KR)
  Receive Date: 20211006
  Receipt Date: 20211006
  Transmission Date: 20220303
  Serious: Yes (Death)
  Sender: FDA-Public Use
  Company Number: KR-GUERBET-KR-20210021

PATIENT
  Age: 46 Year
  Sex: Male

DRUGS (2)
  1. LIPIODOL [Suspect]
     Active Substance: ETHIODIZED OIL
     Indication: Therapeutic embolisation
     Dosage: LIPIODOL IN MIXTURE WITH A GLUE, COLI AND GELFOAM
     Route: 065
  2. GELFOAM [Suspect]
     Active Substance: GELATIN\THROMBIN HUMAN
     Indication: Therapeutic embolisation
     Dosage: LIPIODOL IN MIXTURE WITH A GLUE, COLI AND GELFOAM
     Route: 065

REACTIONS (1)
  - Disseminated intravascular coagulation [Fatal]
